FAERS Safety Report 9085591 (Version 1)
Quarter: 2013Q1

REPORT INFORMATION
  Report Type: Spontaneous
  Country: US (occurrence: US)
  Receive Date: 20130201
  Receipt Date: 20130201
  Transmission Date: 20140127
  Serious: Yes (Other)
  Sender: FDA-Public Use
  Company Number: US-PFIZER INC-K201000834

PATIENT
  Age: 41 Year
  Sex: Female
  Weight: 57.14 kg

DRUGS (2)
  1. SEPTRA [Suspect]
     Indication: INFECTION
     Dosage: TWICE DAILY
     Route: 048
     Dates: start: 20100607, end: 20100611
  2. VICODIN [Concomitant]
     Indication: PAIN
     Dosage: 5-500 MG, PRN

REACTIONS (11)
  - Stevens-Johnson syndrome [Unknown]
  - Tremor [Not Recovered/Not Resolved]
  - Decreased appetite [Recovered/Resolved]
  - Hypersensitivity [Recovering/Resolving]
  - Nausea [Recovered/Resolved]
  - Pyrexia [Recovered/Resolved]
  - Headache [Recovered/Resolved]
  - Erythema [Recovering/Resolving]
  - Urticaria [Recovering/Resolving]
  - Alanine aminotransferase increased [Recovered/Resolved]
  - Aspartate aminotransferase increased [Recovering/Resolving]
